FAERS Safety Report 11592514 (Version 3)
Quarter: 2021Q3

REPORT INFORMATION
  Report Type: Other
  Country: US (occurrence: US)
  Receive Date: 20151005
  Receipt Date: 20210726
  Transmission Date: 20211014
  Serious: Yes (Other)
  Sender: FDA-Public Use
  Company Number: US-ROCHE-1639829

PATIENT
  Sex: Female

DRUGS (3)
  1. LJM716 [Suspect]
     Active Substance: ELGEMTUMAB
     Indication: BREAST CANCER METASTATIC
     Route: 042
  2. TRASTUZUMAB. [Suspect]
     Active Substance: TRASTUZUMAB
     Indication: BREAST CANCER METASTATIC
     Route: 042
  3. BYL719 [Suspect]
     Active Substance: ALPELISIB
     Indication: BREAST CANCER METASTATIC
     Dosage: ESCALATING DOSE STARTING AT 250 MG DAILY.  7 PATIENTS WERE TREATED WITH B 250 MG AND 1 TREATED AT 30
     Route: 048

REACTIONS (11)
  - Supraventricular tachycardia [Unknown]
  - Hypokalaemia [Unknown]
  - Transaminases increased [Unknown]
  - Diarrhoea [Unknown]
  - Decreased appetite [Unknown]
  - Mucosal inflammation [Unknown]
  - Nausea [Unknown]
  - Hyperglycaemia [Unknown]
  - Lipase increased [Unknown]
  - Hepatic enzyme abnormal [Unknown]
  - Hypomagnesaemia [Unknown]
